FAERS Safety Report 12507549 (Version 1)
Quarter: 2016Q2

REPORT INFORMATION
  Report Type: Spontaneous
  Country: US (occurrence: None)
  Receive Date: 20160628
  Receipt Date: 20160628
  Transmission Date: 20160815
  Serious: Yes (Hospitalization, Other)
  Sender: FDA-Public Use
  Company Number: None

PATIENT
  Age: 81 Year
  Sex: Male
  Weight: 74.39 kg

DRUGS (5)
  1. NORCO [Suspect]
     Active Substance: ACETAMINOPHEN\HYDROCODONE BITARTRATE
     Indication: PARKINSON^S DISEASE
     Dates: start: 20160602, end: 20160612
  2. NORCO [Suspect]
     Active Substance: ACETAMINOPHEN\HYDROCODONE BITARTRATE
     Indication: DEMENTIA
     Dates: start: 20160602, end: 20160612
  3. NORCO [Suspect]
     Active Substance: ACETAMINOPHEN\HYDROCODONE BITARTRATE
     Indication: BACK PAIN
     Dates: start: 20160602, end: 20160612
  4. BATHING [Concomitant]
  5. FEEDING [Concomitant]

REACTIONS (4)
  - Activities of daily living impaired [None]
  - Contraindicated drug administered [None]
  - Immobile [None]
  - Communication disorder [None]

NARRATIVE: CASE EVENT DATE: 20160602
